FAERS Safety Report 8227470-5 (Version None)
Quarter: 2012Q1

REPORT INFORMATION
  Report Type: 
  Country: None (occurrence: None)
  Receive Date: 20120322
  Receipt Date: 20120308
  Transmission Date: 20120608
  Serious: Yes (Other)
  Sender: FDA-Public Use
  Company Number: BR-AMGEN-BRASP2012016532

PATIENT
  Age: 60 Year
  Sex: Female
  Weight: 65 kg

DRUGS (9)
  1. OMEPRAZOLE [Concomitant]
     Dosage: STRENGTH 40MG
  2. PAMELOR [Concomitant]
     Dosage: STRENGTH 10MG
  3. SINVASCOR [Concomitant]
     Dosage: STRENGTH 20MG
  4. ENBREL [Suspect]
     Dosage: UNK
     Route: 058
     Dates: start: 20010201
  5. SIMVASTATIN [Concomitant]
     Dosage: STRENGTH 20MG
  6. TIORFAN [Concomitant]
     Dosage: STRENGTH 100MG
  7. ENBREL [Suspect]
     Indication: RHEUMATOID ARTHRITIS
     Dosage: 50 MG (ONE AMPOULE), WEEKLY
     Route: 058
     Dates: start: 20100520, end: 20110701
  8. ATENOLOL [Concomitant]
     Dosage: STRENGTH 25MG
  9. ASPIRIN [Concomitant]
     Dosage: 100 MG, UNK

REACTIONS (2)
  - CARDIAC FUNCTION TEST ABNORMAL [None]
  - BLOOD CREATINE PHOSPHOKINASE INCREASED [None]
